FAERS Safety Report 8511964 (Version 11)
Quarter: 2014Q1

REPORT INFORMATION
  Report Type: Spontaneous
  Country: US (occurrence: US)
  Receive Date: 20120413
  Receipt Date: 20140305
  Transmission Date: 20141002
  Serious: Yes (Hospitalization, Other)
  Sender: FDA-Public Use
  Company Number: US-ASTRAZENECA-2002UW16428

PATIENT
  Age: 64 Year
  Sex: Female
  Weight: 81.6 kg

DRUGS (82)
  1. NEXIUM [Suspect]
     Indication: GASTROOESOPHAGEAL REFLUX DISEASE
     Route: 048
     Dates: start: 2002
  2. NEXIUM [Suspect]
     Indication: GASTROOESOPHAGEAL REFLUX DISEASE
     Route: 048
     Dates: start: 2009
  3. SYMBICORT PMDI [Suspect]
     Indication: RESPIRATORY DISORDER
     Dosage: 160/4.5 MCG, 2 PUFFS BID
     Route: 055
     Dates: start: 2011
  4. SYMBICORT PMDI [Suspect]
     Indication: CHRONIC OBSTRUCTIVE PULMONARY DISEASE
     Dosage: 160/4.5 MCG, 2 PUFFS BID
     Route: 055
     Dates: start: 2011
  5. SEROQUEL [Suspect]
     Indication: HALLUCINATION, AUDITORY
     Route: 048
  6. SEROQUEL [Suspect]
     Indication: DEPRESSION
     Route: 048
  7. SEROQUEL [Suspect]
     Indication: SLEEP DISORDER
     Route: 048
  8. SEROQUEL [Suspect]
     Indication: BIPOLAR DISORDER
     Route: 048
  9. SEROQUEL [Suspect]
     Indication: HALLUCINATION
     Route: 048
  10. SEROQUEL [Suspect]
     Indication: SCHIZOPHRENIA
     Route: 048
  11. SEROQUEL [Suspect]
     Indication: HALLUCINATION, AUDITORY
     Route: 048
  12. SEROQUEL [Suspect]
     Indication: DEPRESSION
     Route: 048
  13. SEROQUEL [Suspect]
     Indication: SLEEP DISORDER
     Route: 048
  14. SEROQUEL [Suspect]
     Indication: BIPOLAR DISORDER
     Route: 048
  15. SEROQUEL [Suspect]
     Indication: HALLUCINATION
     Route: 048
  16. SEROQUEL [Suspect]
     Indication: SCHIZOPHRENIA
     Route: 048
  17. SEROQUEL [Suspect]
     Indication: HALLUCINATION, AUDITORY
     Route: 048
  18. SEROQUEL [Suspect]
     Indication: DEPRESSION
     Route: 048
  19. SEROQUEL [Suspect]
     Indication: SLEEP DISORDER
     Route: 048
  20. SEROQUEL [Suspect]
     Indication: BIPOLAR DISORDER
     Route: 048
  21. SEROQUEL [Suspect]
     Indication: HALLUCINATION
     Route: 048
  22. SEROQUEL [Suspect]
     Indication: SCHIZOPHRENIA
     Route: 048
  23. SEROQUEL [Suspect]
     Indication: HALLUCINATION, AUDITORY
     Route: 048
     Dates: start: 2005
  24. SEROQUEL [Suspect]
     Indication: DEPRESSION
     Route: 048
     Dates: start: 2005
  25. SEROQUEL [Suspect]
     Indication: SLEEP DISORDER
     Route: 048
     Dates: start: 2005
  26. SEROQUEL [Suspect]
     Indication: BIPOLAR DISORDER
     Route: 048
     Dates: start: 2005
  27. SEROQUEL [Suspect]
     Indication: HALLUCINATION
     Route: 048
     Dates: start: 2005
  28. SEROQUEL [Suspect]
     Indication: SCHIZOPHRENIA
     Route: 048
     Dates: start: 2005
  29. SEROQUEL [Suspect]
     Indication: HALLUCINATION, AUDITORY
     Dosage: GENERIC
     Route: 048
     Dates: start: 201205
  30. SEROQUEL [Suspect]
     Indication: DEPRESSION
     Dosage: GENERIC
     Route: 048
     Dates: start: 201205
  31. SEROQUEL [Suspect]
     Indication: SLEEP DISORDER
     Dosage: GENERIC
     Route: 048
     Dates: start: 201205
  32. SEROQUEL [Suspect]
     Indication: BIPOLAR DISORDER
     Dosage: GENERIC
     Route: 048
     Dates: start: 201205
  33. SEROQUEL [Suspect]
     Indication: HALLUCINATION
     Dosage: GENERIC
     Route: 048
     Dates: start: 201205
  34. SEROQUEL [Suspect]
     Indication: SCHIZOPHRENIA
     Dosage: GENERIC
     Route: 048
     Dates: start: 201205
  35. SEROQUEL [Suspect]
     Indication: HALLUCINATION, AUDITORY
     Dosage: GENERIC
     Route: 048
     Dates: start: 201203
  36. SEROQUEL [Suspect]
     Indication: DEPRESSION
     Dosage: GENERIC
     Route: 048
     Dates: start: 201203
  37. SEROQUEL [Suspect]
     Indication: SLEEP DISORDER
     Dosage: GENERIC
     Route: 048
     Dates: start: 201203
  38. SEROQUEL [Suspect]
     Indication: BIPOLAR DISORDER
     Dosage: GENERIC
     Route: 048
     Dates: start: 201203
  39. SEROQUEL [Suspect]
     Indication: HALLUCINATION
     Dosage: GENERIC
     Route: 048
     Dates: start: 201203
  40. SEROQUEL [Suspect]
     Indication: SCHIZOPHRENIA
     Dosage: GENERIC
     Route: 048
     Dates: start: 201203
  41. SEROQUEL [Suspect]
     Indication: HALLUCINATION, AUDITORY
     Dosage: HS
     Route: 048
     Dates: start: 2007, end: 2011
  42. SEROQUEL [Suspect]
     Indication: DEPRESSION
     Dosage: HS
     Route: 048
     Dates: start: 2007, end: 2011
  43. SEROQUEL [Suspect]
     Indication: SLEEP DISORDER
     Dosage: HS
     Route: 048
     Dates: start: 2007, end: 2011
  44. SEROQUEL [Suspect]
     Indication: BIPOLAR DISORDER
     Dosage: HS
     Route: 048
     Dates: start: 2007, end: 2011
  45. SEROQUEL [Suspect]
     Indication: HALLUCINATION
     Dosage: HS
     Route: 048
     Dates: start: 2007, end: 2011
  46. SEROQUEL [Suspect]
     Indication: SCHIZOPHRENIA
     Dosage: HS
     Route: 048
     Dates: start: 2007, end: 2011
  47. SEROQUEL [Suspect]
     Indication: HALLUCINATION, AUDITORY
     Dosage: GENERIC
     Route: 048
     Dates: start: 2011
  48. SEROQUEL [Suspect]
     Indication: DEPRESSION
     Dosage: GENERIC
     Route: 048
     Dates: start: 2011
  49. SEROQUEL [Suspect]
     Indication: SLEEP DISORDER
     Dosage: GENERIC
     Route: 048
     Dates: start: 2011
  50. SEROQUEL [Suspect]
     Indication: BIPOLAR DISORDER
     Dosage: GENERIC
     Route: 048
     Dates: start: 2011
  51. SEROQUEL [Suspect]
     Indication: HALLUCINATION
     Dosage: GENERIC
     Route: 048
     Dates: start: 2011
  52. SEROQUEL [Suspect]
     Indication: SCHIZOPHRENIA
     Dosage: GENERIC
     Route: 048
     Dates: start: 2011
  53. SEROQUEL [Suspect]
     Indication: HALLUCINATION, AUDITORY
     Route: 048
     Dates: start: 201201
  54. SEROQUEL [Suspect]
     Indication: DEPRESSION
     Route: 048
     Dates: start: 201201
  55. SEROQUEL [Suspect]
     Indication: SLEEP DISORDER
     Route: 048
     Dates: start: 201201
  56. SEROQUEL [Suspect]
     Indication: BIPOLAR DISORDER
     Route: 048
     Dates: start: 201201
  57. SEROQUEL [Suspect]
     Indication: HALLUCINATION
     Route: 048
     Dates: start: 201201
  58. SEROQUEL [Suspect]
     Indication: SCHIZOPHRENIA
     Route: 048
     Dates: start: 201201
  59. SEROQUEL [Suspect]
     Indication: HALLUCINATION, AUDITORY
     Route: 048
     Dates: start: 201309
  60. SEROQUEL [Suspect]
     Indication: DEPRESSION
     Route: 048
     Dates: start: 201309
  61. SEROQUEL [Suspect]
     Indication: SLEEP DISORDER
     Route: 048
     Dates: start: 201309
  62. SEROQUEL [Suspect]
     Indication: BIPOLAR DISORDER
     Route: 048
     Dates: start: 201309
  63. SEROQUEL [Suspect]
     Indication: HALLUCINATION
     Route: 048
     Dates: start: 201309
  64. SEROQUEL [Suspect]
     Indication: SCHIZOPHRENIA
     Route: 048
     Dates: start: 201309
  65. PRILOSEC [Suspect]
     Route: 048
  66. MORPHIN [Suspect]
     Route: 065
  67. ANTIBIOTIC [Suspect]
     Indication: STAPHYLOCOCCAL INFECTION
     Route: 065
  68. STEROIDS [Suspect]
     Route: 065
  69. KLONOPIN [Concomitant]
     Indication: PANIC ATTACK
     Dosage: 1.5 MG IN THE MORNING, 1 MG AT 11 AM, 1.5 MG AT 3 PM AND 1 MG AT 7 PM.
  70. CELEXA [Concomitant]
  71. NAVANE [Concomitant]
  72. PHENERGAN [Concomitant]
  73. VISTARIL [Concomitant]
  74. LIPITOR [Concomitant]
  75. FIORICET WITH CODEINE [Concomitant]
     Indication: HEADACHE
     Dosage: TWO TIMES DAILY
  76. FIORICET WITH CODEINE [Concomitant]
     Indication: HEADACHE
     Dosage: AS NEEDED
  77. ASACOL [Concomitant]
  78. VANCOMYCIN [Concomitant]
     Indication: ANTIBIOTIC THERAPY
  79. EFFEXOR [Concomitant]
     Indication: DEPRESSION
     Dosage: GENERIC, 150 MG TWICE DAILY
     Dates: start: 2005
  80. EFFEXOR [Concomitant]
     Indication: ANTIDEPRESSANT THERAPY
     Dosage: GENERIC, 150 MG TWICE DAILY
     Dates: start: 2005
  81. AFAXOLINE ER [Concomitant]
  82. RISPERDAL [Concomitant]

REACTIONS (44)
  - Homicidal ideation [Unknown]
  - Pancreatitis [Unknown]
  - Pneumonia [Unknown]
  - Emphysema [Unknown]
  - Chronic obstructive pulmonary disease [Unknown]
  - Pancreatic mass [Not Recovered/Not Resolved]
  - Biliary dilatation [Unknown]
  - Malaise [Unknown]
  - Feeling abnormal [Unknown]
  - Influenza [Unknown]
  - Bone pain [Unknown]
  - Staphylococcal infection [Unknown]
  - Clostridium difficile infection [Unknown]
  - Condition aggravated [Unknown]
  - Abnormal sleep-related event [Unknown]
  - Psychotic behaviour [Unknown]
  - Thinking abnormal [Unknown]
  - Productive cough [Unknown]
  - Pancreatic disorder [Unknown]
  - Feeling jittery [Unknown]
  - Oropharyngeal pain [Unknown]
  - Crying [Unknown]
  - Abnormal behaviour [Unknown]
  - Tremor [Unknown]
  - Pyrexia [Unknown]
  - Nightmare [Unknown]
  - Circadian rhythm sleep disorder [Unknown]
  - Feeling abnormal [Unknown]
  - Gastrooesophageal reflux disease [Unknown]
  - Adverse drug reaction [Unknown]
  - Pancreatic neoplasm [Unknown]
  - Blood iron decreased [Unknown]
  - Hallucination, auditory [Unknown]
  - Hallucination, visual [Unknown]
  - Headache [Unknown]
  - Insomnia [Unknown]
  - Somnolence [Unknown]
  - Abdominal pain upper [Not Recovered/Not Resolved]
  - Abdominal pain upper [Not Recovered/Not Resolved]
  - Drug hypersensitivity [Unknown]
  - Drug ineffective [Unknown]
  - Drug dose omission [Unknown]
  - Off label use [Unknown]
  - Intentional drug misuse [Unknown]
